FAERS Safety Report 4283544-5 (Version None)
Quarter: 2004Q1

REPORT INFORMATION
  Report Type: 
  Country: None (occurrence: None)
  Receive Date: 20040121
  Receipt Date: 20030414
  Transmission Date: 20041129
  Serious: Yes (Hospitalization)
  Sender: FDA-Public Use
  Company Number: A03200300795

PATIENT
  Age: 73 Year
  Sex: Female
  Weight: 53.5244 kg

DRUGS (4)
  1. PLAVIX [Suspect]
     Indication: CARDIAC DISORDER
     Dosage: 75 MG QD ORAL
     Route: 048
     Dates: start: 20020101, end: 20020101
  2. PLAVIX [Suspect]
     Indication: CEREBROVASCULAR ACCIDENT
     Dosage: 75 MG QD ORAL
     Route: 048
     Dates: start: 20020101, end: 20020101
  3. PLAVIX [Suspect]
     Indication: CARDIAC DISORDER
     Dosage: 75 MG QD ORAL
     Route: 048
     Dates: start: 20030301
  4. PLAVIX [Suspect]
     Indication: CEREBROVASCULAR ACCIDENT
     Dosage: 75 MG QD ORAL
     Route: 048
     Dates: start: 20030301

REACTIONS (2)
  - CONTUSION [None]
  - EPISTAXIS [None]
